FAERS Safety Report 8841374 (Version 1)
Quarter: 2012Q4

REPORT INFORMATION
  Report Type: 
  Country: US (occurrence: US)
  Receive Date: 20121015
  Receipt Date: 20121015
  Transmission Date: 20130627
  Serious: No
  Sender: FDA-Public Use
  Company Number: US-BAYER-2012-107009

PATIENT
  Age: 67 Year
  Sex: Female
  Weight: 53 kg

DRUGS (3)
  1. ALEVE CAPLET/TABLET,MIDOL EXTENDED RELIEF CAPLET [Suspect]
     Indication: MYALGIA
     Dosage: 1 DF, BID
     Route: 048
     Dates: start: 2010
  2. BLOOD PRESSURE MEDICATION (NOS) [Concomitant]
  3. CHOLESTEROL MEDICATION [Concomitant]
     Dosage: UNK

REACTIONS (1)
  - Blood pressure increased [Recovered/Resolved]
